FAERS Safety Report 4445696-3 (Version None)
Quarter: 2004Q3

REPORT INFORMATION
  Report Type: 
  Country: None (occurrence: None)
  Receive Date: 20040902
  Receipt Date: 20040820
  Transmission Date: 20050211
  Serious: Yes (Hospitalization, Other)
  Sender: FDA-Public Use
  Company Number: 2003034898

PATIENT
  Age: 72 Year
  Sex: Male

DRUGS (1)
  1. CARDURA XL [Suspect]
     Indication: BENIGN PROSTATIC HYPERPLASIA
     Dosage: 4 MG (4 MG, 1 IN 1 D), ORAL
     Route: 048
     Dates: start: 20030701

REACTIONS (2)
  - GASTROINTESTINAL NEOPLASM [None]
  - HAEMORRHAGE [None]
